FAERS Safety Report 5380462-6 (Version None)
Quarter: 2007Q3

REPORT INFORMATION
  Report Type: 
  Country: None (occurrence: None)
  Receive Date: 20070706
  Receipt Date: 20070626
  Transmission Date: 20080115
  Serious: Yes (Other)
  Sender: FDA-Public Use
  Company Number: US-ROCHE-485743

PATIENT
  Age: 54 Year
  Sex: Male
  Weight: 61.2 kg

DRUGS (3)
  1. PEGASYS [Suspect]
     Route: 058
     Dates: start: 20061113
  2. COPEGUS [Suspect]
     Route: 048
     Dates: start: 20061113, end: 20070625
  3. KLONOPIN [Suspect]
     Route: 048
     Dates: start: 20070305

REACTIONS (13)
  - ALOPECIA [None]
  - ANXIETY [None]
  - DIARRHOEA [None]
  - DIZZINESS [None]
  - EPILEPTIC AURA [None]
  - HAEMOGLOBIN DECREASED [None]
  - INCORRECT DOSE ADMINISTERED [None]
  - LOCALISED INFECTION [None]
  - NAUSEA [None]
  - PANIC ATTACK [None]
  - TREMOR [None]
  - VOMITING [None]
  - WHITE BLOOD CELL COUNT DECREASED [None]
